FAERS Safety Report 7072891-X (Version None)
Quarter: 2010Q4

REPORT INFORMATION
  Report Type: 
  Country: None (occurrence: None)
  Receive Date: 20101029
  Receipt Date: 20100423
  Transmission Date: 20110411
  Serious: No
  Sender: FDA-Public Use
  Company Number: A0852053A

PATIENT
  Age: 62 Year
  Sex: Female
  Weight: 56.8 kg

DRUGS (9)
  1. ADVAIR DISKUS 100/50 [Suspect]
     Indication: PRODUCT USED FOR UNKNOWN INDICATION
     Route: 065
     Dates: start: 20050101
  2. SYNTHROID [Concomitant]
     Route: 048
  3. NASONEX [Concomitant]
  4. PROZAC [Concomitant]
     Route: 048
  5. KLONOPIN [Concomitant]
     Route: 048
  6. XANAX [Concomitant]
     Route: 048
  7. ZOCOR [Concomitant]
  8. CALCIUM [Concomitant]
  9. BONIVA [Concomitant]

REACTIONS (1)
  - ORAL INFECTION [None]
